FAERS Safety Report 9371618 (Version 1)
Quarter: 2013Q2

REPORT INFORMATION
  Report Type: Spontaneous
  Country: US (occurrence: None)
  Receive Date: 20130626
  Receipt Date: 20130626
  Transmission Date: 20140414
  Serious: No
  Sender: FDA-Public Use
  Company Number: None

PATIENT
  Age: 63 Year
  Sex: Male
  Weight: 98.5 kg

DRUGS (1)
  1. LISINOPRIL [Suspect]
     Indication: HYPERTENSION
     Dosage: MG   PO
     Route: 048
     Dates: start: 20130328, end: 20130529

REACTIONS (8)
  - Swollen tongue [None]
  - Rash [None]
  - Pruritus [None]
  - Abdominal discomfort [None]
  - Diarrhoea [None]
  - Nausea [None]
  - Dizziness [None]
  - Angioedema [None]
